FAERS Safety Report 9429118 (Version 4)
Quarter: 2013Q3

REPORT INFORMATION
  Report Type: Report from Study
  Country: US (occurrence: US)
  Receive Date: 20130730
  Receipt Date: 20130927
  Transmission Date: 20140515
  Serious: Yes (Hospitalization, Other)
  Sender: FDA-Public Use
  Company Number: US-JNJFOC-20130712984

PATIENT
  Age: 68 Year
  Sex: Female

DRUGS (1)
  1. INVEGA SUSTENNA [Suspect]
     Indication: PRODUCT USED FOR UNKNOWN INDICATION
     Route: 030
     Dates: start: 201306, end: 2013

REACTIONS (6)
  - Deep vein thrombosis [Unknown]
  - Injection site pain [Unknown]
  - Injection site induration [Unknown]
  - Injection site discomfort [Unknown]
  - Injection site nodule [Unknown]
  - Injection site inflammation [Unknown]
